FAERS Safety Report 13422159 (Version 1)
Quarter: 2017Q2

REPORT INFORMATION
  Report Type: Spontaneous
  Country: SE (occurrence: SE)
  Receive Date: 20170410
  Receipt Date: 20170410
  Transmission Date: 20170830
  Serious: Yes (Other)
  Sender: FDA-Public Use
  Company Number: SE-ORION CORPORATION ORION PHARMA-SPIR2017-0010

PATIENT
  Age: 76 Year
  Sex: Female

DRUGS (3)
  1. SPIRONOLACTONE (TRADE NAME UNKNOWN) [Suspect]
     Active Substance: SPIRONOLACTONE
     Route: 065
  2. NOZINAN [Suspect]
     Active Substance: LEVOMEPROMAZINE
     Route: 065
  3. SERTRALIN (TRADE NAME UNKNOWN) [Suspect]
     Active Substance: SERTRALINE HYDROCHLORIDE
     Dosage: STRENGTH: 50 MG
     Route: 065

REACTIONS (1)
  - Inappropriate antidiuretic hormone secretion [Recovered/Resolved]
